FAERS Safety Report 9459233 (Version 1)
Quarter: 2013Q3

REPORT INFORMATION
  Report Type: Spontaneous
  Country: PT (occurrence: PT)
  Receive Date: 20130814
  Receipt Date: 20130814
  Transmission Date: 20140515
  Serious: Yes (Other)
  Sender: FDA-Public Use
  Company Number: PT-B.I. PHARMACEUTICALS,INC./RIDGEFIELD-2013-BI-23877PO

PATIENT
  Age: 68 Year
  Sex: Female

DRUGS (5)
  1. TWYNSTA [Suspect]
     Indication: HYPERTENSION
     Dosage: 1 ANZ
     Route: 048
  2. BROMAZEPAM 3MG [Concomitant]
  3. MONOITRATO ISOSORBIDE 20MG [Concomitant]
  4. GLIBENCLAMIDE + METFORMIN 2.5MG+500MG [Concomitant]
     Dosage: STRENGHT: 2.5MG+500MG
  5. PANTOPRAZOL 20MG [Concomitant]

REACTIONS (3)
  - Abdominal pain upper [Recovered/Resolved]
  - Feeling abnormal [Recovered/Resolved]
  - Dizziness [Recovered/Resolved]
